FAERS Safety Report 6307551-3 (Version None)
Quarter: 2009Q3

REPORT INFORMATION
  Report Type: 
  Country: None (occurrence: None)
  Receive Date: 20090811
  Receipt Date: 20090727
  Transmission Date: 20100115
  Serious: Yes (Death)
  Sender: FDA-Public Use
  Company Number: 2009EK003927

PATIENT

DRUGS (2)
  1. CARDENE IV (NICARDIPINE HYDROCHLORIDE IV) [Suspect]
     Indication: DRUG USE FOR UNKNOWN INDICATION
  2. CLEVIPREX [Suspect]
     Indication: DRUG USE FOR UNKNOWN INDICATION

REACTIONS (1)
  - DEATH [None]
